FAERS Safety Report 10492927 (Version 1)
Quarter: 2014Q4

REPORT INFORMATION
  Report Type: Spontaneous
  Country: US (occurrence: US)
  Receive Date: 20141002
  Receipt Date: 20141002
  Transmission Date: 20150528
  Serious: No
  Sender: FDA-Public Use
  Company Number: US-GLAXOSMITHKLINE-A1077093A

PATIENT
  Sex: Female

DRUGS (9)
  1. ADVAIR HFA [Suspect]
     Active Substance: FLUTICASONE PROPIONATE\SALMETEROL XINAFOATE
     Indication: ASTHMA
     Route: 055
  2. PROBIOTICS [Concomitant]
     Active Substance: PROBIOTICS NOS
  3. VAGIFEM [Concomitant]
     Active Substance: ESTRADIOL
  4. ZYRTEC [Concomitant]
     Active Substance: CETIRIZINE HYDROCHLORIDE
  5. ASPIRIN. [Concomitant]
     Active Substance: ASPIRIN
  6. IBUPROFEN. [Concomitant]
     Active Substance: IBUPROFEN
  7. B12 VITAMIN [Concomitant]
  8. CLARITIN [Concomitant]
     Active Substance: LORATADINE
  9. FLOVENT [Suspect]
     Active Substance: FLUTICASONE PROPIONATE
     Indication: ASTHMA
     Dosage: 2PUFF TWICE PER DAY
     Route: 055

REACTIONS (4)
  - Bronchitis [Not Recovered/Not Resolved]
  - Adverse drug reaction [Unknown]
  - Device use error [Recovered/Resolved]
  - Dyspnoea [Not Recovered/Not Resolved]
